FAERS Safety Report 10992273 (Version 3)
Quarter: 2015Q2

REPORT INFORMATION
  Report Type: Report from Study
  Country: US (occurrence: US)
  Receive Date: 20150406
  Receipt Date: 20150622
  Transmission Date: 20150821
  Serious: Yes (Hospitalization, Other)
  Sender: FDA-Public Use
  Company Number: PHEH2015US005951

PATIENT
  Age: 38 Year
  Sex: Female
  Weight: 57 kg

DRUGS (1)
  1. GILENYA [Suspect]
     Active Substance: FINGOLIMOD HYDROCHLORIDE
     Indication: MULTIPLE SCLEROSIS
     Dosage: 0.5 MG, QD
     Route: 048
     Dates: start: 20150324, end: 20150324

REACTIONS (3)
  - Bradycardia [Recovered/Resolved]
  - Extrasystoles [Not Recovered/Not Resolved]
  - Atrioventricular block second degree [Not Recovered/Not Resolved]

NARRATIVE: CASE EVENT DATE: 20150324
